FAERS Safety Report 4668412-9 (Version None)
Quarter: 2005Q2

REPORT INFORMATION
  Report Type: 
  Country: None (occurrence: None)
  Receive Date: 20050519
  Receipt Date: 20050513
  Transmission Date: 20051028
  Serious: Yes (Other)
  Sender: FDA-Public Use
  Company Number: US-2005-003519

PATIENT
  Age: 48 Year
  Sex: Male
  Weight: 48.1 kg

DRUGS (8)
  1. BETASERON [Suspect]
     Indication: MULTIPLE SCLEROSIS
     Dosage: 8 MIU, EVERY 2D, SUBCUTANEOUS
     Route: 058
     Dates: start: 20030801, end: 20050126
  2. BACLOFEN [Concomitant]
  3. CELEXA [Concomitant]
  4. PERIACTIN [Concomitant]
  5. MIRALAX [Concomitant]
  6. REMERON [Concomitant]
  7. VALISONE (BETAMETHASONE VALERATE) [Concomitant]
  8. ERYTHROMYCIN OINTMENT [Concomitant]

REACTIONS (2)
  - DISEASE PROGRESSION [None]
  - MULTIPLE SCLEROSIS [None]
